FAERS Safety Report 20504943 (Version 1)
Quarter: 2022Q1

REPORT INFORMATION
  Report Type: Other
  Country: GB (occurrence: None)
  Receive Date: 20220223
  Receipt Date: 20220223
  Transmission Date: 20220424
  Serious: Yes (Death)
  Sender: FDA-Public Use
  Company Number: GB-ROCHE-3033887

PATIENT
  Sex: Male

DRUGS (1)
  1. ESBRIET [Suspect]
     Active Substance: PIRFENIDONE
     Indication: Idiopathic pulmonary fibrosis
     Dosage: 6 CAPSULES DAILY, FIRST AND LAST DELIVERY WAS 17 JUL 2017, HENCE CAPSULES WERE SUPPLIED NOT TABLETS.
     Route: 048
     Dates: start: 20170717

REACTIONS (1)
  - Death [Fatal]
